FAERS Safety Report 15789978 (Version 2)
Quarter: 2019Q1

REPORT INFORMATION
  Report Type: Spontaneous
  Country: US (occurrence: US)
  Receive Date: 20190104
  Receipt Date: 20190211
  Transmission Date: 20190417
  Serious: Yes (Other)
  Sender: FDA-Public Use
  Company Number: US-PFIZER INC-2019005220

PATIENT
  Age: 83 Year
  Sex: Female
  Weight: 44 kg

DRUGS (2)
  1. BOSULIF [Suspect]
     Active Substance: BOSUTINIB MONOHYDRATE
     Indication: LEUKAEMIA
     Dosage: 500 MG, 1X/DAY
     Dates: start: 20181210
  2. BOSULIF [Suspect]
     Active Substance: BOSUTINIB MONOHYDRATE
     Dosage: 500 MG, 1X/DAY
     Route: 048
     Dates: start: 201901, end: 201901

REACTIONS (7)
  - Fatigue [Unknown]
  - Vomiting [Unknown]
  - Diarrhoea [Unknown]
  - Dehydration [Unknown]
  - Malaise [Recovered/Resolved]
  - Weight increased [Unknown]
  - Renal impairment [Unknown]

NARRATIVE: CASE EVENT DATE: 201901
